FAERS Safety Report 23693029 (Version 1)
Quarter: 2024Q2

REPORT INFORMATION
  Report Type: Spontaneous
  Country: US (occurrence: None)
  Receive Date: 20240401
  Receipt Date: 20240401
  Transmission Date: 20240715
  Serious: No
  Sender: FDA-Public Use
  Company Number: None

PATIENT
  Age: 96 Year
  Sex: Female

DRUGS (1)
  1. ADBRY [Suspect]
     Active Substance: TRALOKINUMAB-LDRM
     Indication: Dermatitis atopic
     Dosage: OTHER QUANTITY : 600MG THEN 300MG;?OTHER FREQUENCY : ON D 1 THEN Q2WKS;?
     Route: 058
     Dates: start: 202402

REACTIONS (3)
  - Hip fracture [None]
  - Fall [None]
  - Therapy interrupted [None]
